FAERS Safety Report 24055349 (Version 3)
Quarter: 2024Q3

REPORT INFORMATION
  Report Type: Spontaneous
  Country: JP (occurrence: JP)
  Receive Date: 20240705
  Receipt Date: 20240909
  Transmission Date: 20241017
  Serious: No
  Sender: PFIZER
  Company Number: JP-PFIZER INC-202400203458

PATIENT
  Age: 9 Year
  Sex: Male

DRUGS (2)
  1. NGENLA [Suspect]
     Active Substance: SOMATROGON-GHLA
     Indication: Growth hormone deficiency
     Dosage: UNK
     Dates: start: 202309, end: 202312
  2. NGENLA [Suspect]
     Active Substance: SOMATROGON-GHLA
     Indication: Dwarfism

REACTIONS (1)
  - Injection site pain [Recovered/Resolved]

NARRATIVE: CASE EVENT DATE: 20230901
